FAERS Safety Report 18118168 (Version 1)
Quarter: 2020Q3

REPORT INFORMATION
  Report Type: Spontaneous
  Country: US (occurrence: US)
  Receive Date: 20200806
  Receipt Date: 20200806
  Transmission Date: 20201103
  Serious: Yes (Hospitalization)
  Sender: FDA-Public Use
  Company Number: US-PFIZER INC-2020295078

PATIENT
  Age: 49 Year
  Sex: Male

DRUGS (1)
  1. PROCAINE BENZYLPENICILLIN [Suspect]
     Active Substance: PENICILLIN G PROCAINE
     Indication: URETHRITIS GONOCOCCAL
     Dosage: 4.8 MIU, (DIVIDED DOSES IN EACH BUTTOCK)
     Route: 030

REACTIONS (1)
  - Delusion [Recovered/Resolved]
